FAERS Safety Report 7795175-0 (Version None)
Quarter: 2011Q3

REPORT INFORMATION
  Report Type: 
  Country: None (occurrence: None)
  Receive Date: 20110930
  Receipt Date: 20110915
  Transmission Date: 20111222
  Serious: Yes (Life-Threatening, Hospitalization)
  Sender: FDA-Public Use
  Company Number: 2011MA011997

PATIENT
  Age: 76 Year
  Sex: Male

DRUGS (2)
  1. CEFOPERAZONE/SULBACTAM (NO PREF. NAME) [Suspect]
     Indication: BRONCHITIS
     Dosage: 3 GW;QD
  2. AMINOPHYLLINE [Suspect]
     Indication: BRONCHITIS
     Dosage: 500 MG;QD;IV
     Route: 042

REACTIONS (13)
  - DYSPNOEA [None]
  - RENAL IMPAIRMENT [None]
  - SINUS TACHYCARDIA [None]
  - PULMONARY CONGESTION [None]
  - INFLAMMATION [None]
  - MITRAL VALVE INCOMPETENCE [None]
  - ACUTE CORONARY SYNDROME [None]
  - LUNG CONSOLIDATION [None]
  - PNEUMONIA [None]
  - ELECTROCARDIOGRAM T WAVE INVERSION [None]
  - AORTIC VALVE INCOMPETENCE [None]
  - STRESS CARDIOMYOPATHY [None]
  - CARDIAC FAILURE [None]
